FAERS Safety Report 18588934 (Version 1)
Quarter: 2020Q4

REPORT INFORMATION
  Report Type: Other
  Country: ES (occurrence: ES)
  Receive Date: 20201208
  Receipt Date: 20201208
  Transmission Date: 20210114
  Serious: Yes (Hospitalization, Other)
  Sender: FDA-Public Use
  Company Number: ES-DEXPHARM-20201083

PATIENT
  Age: 88 Year
  Sex: Female

DRUGS (8)
  1. ESCITALOPRAM [Concomitant]
     Active Substance: ESCITALOPRAM OXALATE
  2. ASPIRIN. [Concomitant]
     Active Substance: ASPIRIN
  3. ATORVASTATIN [Concomitant]
     Active Substance: ATORVASTATIN
  4. PARACETAMOL [Concomitant]
     Active Substance: ACETAMINOPHEN
  5. CEFUROXIME. [Concomitant]
     Active Substance: CEFUROXIME
  6. LOSARTAN/HCTZ [Suspect]
     Active Substance: HYDROCHLOROTHIAZIDE\LOSARTAN
  7. OMEPRAZOLE. [Interacting]
     Active Substance: OMEPRAZOLE
  8. CLOMETHIAZOLE [Concomitant]
     Active Substance: CLOMETHIAZOLE

REACTIONS (1)
  - Drug interaction [Recovered/Resolved]
